FAERS Safety Report 7432582-X (Version None)
Quarter: 2011Q2

REPORT INFORMATION
  Report Type: 
  Country: None (occurrence: None)
  Receive Date: 20110422
  Receipt Date: 20110412
  Transmission Date: 20111010
  Serious: No
  Sender: FDA-Public Use
  Company Number: US-B.I. PHARMACEUTICALS,INC./RIDGEFIELD-2011-BP-10614BP

PATIENT
  Sex: Female

DRUGS (6)
  1. PRILOSEC [Concomitant]
     Indication: GASTROOESOPHAGEAL REFLUX DISEASE
     Dosage: 20 MG
     Route: 048
  2. LOVASTATIN [Concomitant]
     Indication: DYSLIPIDAEMIA
     Dosage: 80 MG
     Route: 048
  3. SOTALOL [Concomitant]
     Indication: ARRHYTHMIA
     Dosage: 160 MG
     Route: 048
  4. LISINOPRIL [Concomitant]
     Indication: HYPERTENSION
     Dosage: 10 MG
     Route: 048
  5. PRADAXA [Suspect]
     Indication: ATRIAL FIBRILLATION
     Dosage: 300 MG
     Route: 048
     Dates: start: 20110408, end: 20110409
  6. SYNTHROID [Concomitant]
     Indication: HYPOTHYROIDISM
     Dosage: 0.1 MG
     Route: 048

REACTIONS (5)
  - IRRITABILITY [None]
  - EYELID OEDEMA [None]
  - PRURITUS [None]
  - SWELLING FACE [None]
  - LOCAL SWELLING [None]
